FAERS Safety Report 7347071-0 (Version None)
Quarter: 2011Q1

REPORT INFORMATION
  Report Type: 
  Country: None (occurrence: None)
  Receive Date: 20110311
  Receipt Date: 20110304
  Transmission Date: 20110831
  Serious: Yes (Other)
  Sender: FDA-Public Use
  Company Number: US-ELI_LILLY_AND_COMPANY-US201102001000

PATIENT
  Sex: Female
  Weight: 120.18 kg

DRUGS (2)
  1. DULOXETINE HYDROCHLORIDE [Suspect]
     Indication: DEPRESSION
     Dosage: 60 MG, UNK
     Dates: start: 20090101
  2. REMERON [Concomitant]
     Indication: ANXIETY
     Dosage: 30 MG, DAILY (1/D)
     Dates: start: 20090101, end: 20110125

REACTIONS (2)
  - ABORTION SPONTANEOUS [None]
  - PREGNANCY [None]
